FAERS Safety Report 16863445 (Version 1)
Quarter: 2019Q3

REPORT INFORMATION
  Report Type: Report from Study
  Country: AR (occurrence: AR)
  Receive Date: 20190927
  Receipt Date: 20190927
  Transmission Date: 20191005
  Serious: Yes (Other)
  Sender: FDA-Public Use
  Company Number: PHHY2019AR221508

PATIENT
  Sex: Female

DRUGS (1)
  1. DIOVAN D [Suspect]
     Active Substance: HYDROCHLOROTHIAZIDE\VALSARTAN
     Indication: PRODUCT USED FOR UNKNOWN INDICATION
     Dosage: (VALSARTAN 80 MG, HYDROCHLOROTHIAZIDE 12.5 MG)
     Route: 065

REACTIONS (9)
  - Limb discomfort [Unknown]
  - Hepatic cyst [Unknown]
  - Spina bifida cystica [Unknown]
  - Non-cardiac chest pain [Unknown]
  - Blood cholesterol increased [Unknown]
  - Cardiomegaly [Unknown]
  - Thyroid cyst [Unknown]
  - Spinal disorder [Unknown]
  - Renal cyst [Unknown]
